FAERS Safety Report 10075606 (Version 6)
Quarter: 2015Q4

REPORT INFORMATION
  Report Type: Spontaneous
  Country: US (occurrence: US)
  Receive Date: 20140414
  Receipt Date: 20151123
  Transmission Date: 20160304
  Serious: Yes (Hospitalization, Congenital Anomaly, Other)
  Sender: FDA-Public Use
  Company Number: US-ELI_LILLY_AND_COMPANY-US201404001911

PATIENT
  Age: 1 Month

DRUGS (2)
  1. PROZAC [Suspect]
     Active Substance: FLUOXETINE HYDROCHLORIDE
     Indication: PRODUCT USED FOR UNKNOWN INDICATION
     Dosage: UNK, UNKNOWN
     Route: 064
  2. PROZAC [Suspect]
     Active Substance: FLUOXETINE HYDROCHLORIDE
     Dosage: UNK, UNKNOWN
     Route: 064

REACTIONS (33)
  - Atrial septal defect [Recovered/Resolved]
  - Speech disorder [Unknown]
  - Cognitive disorder [Unknown]
  - Lumbar spinal stenosis [Unknown]
  - Back pain [Unknown]
  - Chondrodystrophy [Not Recovered/Not Resolved]
  - Migraine [Unknown]
  - Foetal exposure during pregnancy [Recovered/Resolved]
  - Pain in extremity [Unknown]
  - Photophobia [Unknown]
  - Fall [Recovered/Resolved]
  - Postoperative adhesion [Unknown]
  - Sleep apnoea syndrome [Unknown]
  - Gliosis [Unknown]
  - Cervical spinal stenosis [Unknown]
  - Kyphosis [Unknown]
  - Hydrocephalus [Unknown]
  - Pain [Unknown]
  - Insomnia [Unknown]
  - Cerebrospinal fluid circulation disorder [Unknown]
  - Hypoaesthesia [Unknown]
  - Headache [Unknown]
  - Cerebral ventricle dilatation [Unknown]
  - Attention deficit/hyperactivity disorder [Unknown]
  - Dyslexia [Unknown]
  - Musculoskeletal pain [Unknown]
  - Balance disorder [Unknown]
  - Foramen magnum stenosis [Unknown]
  - Muscular weakness [Unknown]
  - Dizziness [Unknown]
  - Cervical cord compression [Unknown]
  - Knee deformity [Recovered/Resolved]
  - Musculoskeletal stiffness [Unknown]

NARRATIVE: CASE EVENT DATE: 199809
